FAERS Safety Report 4667594-2 (Version None)
Quarter: 2005Q2

REPORT INFORMATION
  Report Type: 
  Country: None (occurrence: None)
  Receive Date: 20050502
  Receipt Date: 20040426
  Transmission Date: 20051028
  Serious: Yes (Disabling)
  Sender: FDA-Public Use
  Company Number: 1611

PATIENT
  Age: 65 Year
  Sex: Male

DRUGS (8)
  1. ONTAK [Suspect]
     Indication: CHRONIC LYMPHOCYTIC LEUKAEMIA
     Dates: start: 20030101, end: 20030101
  2. ONTAK [Suspect]
     Indication: CHRONIC LYMPHOCYTIC LEUKAEMIA
     Dosage: 18 UG/KG/D QD IV
     Dates: start: 20031201, end: 20040314
  3. IMMUNE GLOBULIN INTRAVENOUS (HUMAN) [Concomitant]
  4. METOCLOPRAMIDE HYDROCHLORIDE D [Concomitant]
  5. MULTIPLE CHEMOTHERAPY REGIMENS [Concomitant]
  6. OMEPRAZOLE [Concomitant]
  7. PREDNISOLONE [Concomitant]
  8. TRIMETHOPRIM-SULFAMETHOXAZOLE [Concomitant]

REACTIONS (3)
  - NEOPLASM MALIGNANT [None]
  - RETINAL DISORDER [None]
  - VISUAL DISTURBANCE [None]
